FAERS Safety Report 4697683-8 (Version None)
Quarter: 2005Q2

REPORT INFORMATION
  Report Type: 
  Country: None (occurrence: None)
  Receive Date: 20050622
  Receipt Date: 20050609
  Transmission Date: 20051028
  Serious: Yes (Other)
  Sender: FDA-Public Use
  Company Number: 2005080150

PATIENT
  Age: 49 Year
  Sex: Female
  Weight: 99.7913 kg

DRUGS (8)
  1. CELEBREX [Suspect]
     Indication: ARTHROPATHY
     Dates: start: 19990101
  2. PAXIL [Suspect]
     Indication: DEPRESSED MOOD
  3. WELLBUTRIN [Suspect]
     Indication: DEPRESSED MOOD
  4. ALEVE [Suspect]
     Indication: ARTHROPATHY
     Dates: start: 20050101
  5. AVALIDE [Concomitant]
  6. ASPIRIN [Concomitant]
  7. MULTIVITAMIN [Concomitant]
  8. ATENOLOL [Concomitant]

REACTIONS (10)
  - DEPRESSED MOOD [None]
  - DIZZINESS [None]
  - FEELING ABNORMAL [None]
  - FLAT AFFECT [None]
  - MULTIPLE SCLEROSIS [None]
  - NASOPHARYNGITIS [None]
  - PAIN [None]
  - PERSONALITY DISORDER [None]
  - RETCHING [None]
  - VOMITING [None]
